FAERS Safety Report 11048683 (Version 1)
Quarter: 2015Q2

REPORT INFORMATION
  Report Type: Spontaneous
  Country: CN (occurrence: CN)
  Receive Date: 20150420
  Receipt Date: 20150420
  Transmission Date: 20150821
  Serious: Yes (Other)
  Sender: FDA-Public Use
  Company Number: CN-JNJFOC-20150404823

PATIENT
  Age: 7 Month
  Sex: Male

DRUGS (4)
  1. ALL OTHER THERAPEUTIC PRODUCTS [Concomitant]
     Active Substance: UNSPECIFIED INGREDIENT
     Indication: BRONCHITIS
     Route: 048
     Dates: start: 201406
  2. TYLENOL [Suspect]
     Active Substance: ACETAMINOPHEN
     Indication: BRONCHITIS
     Route: 048
     Dates: start: 201406
  3. CEFUROXIME SODIUM. [Suspect]
     Active Substance: CEFUROXIME SODIUM
     Indication: BRONCHITIS
     Route: 042
     Dates: start: 201406, end: 201406
  4. ROXITHROMYCIN [Suspect]
     Active Substance: ROXITHROMYCIN
     Indication: BRONCHITIS
     Route: 048
     Dates: start: 201406

REACTIONS (3)
  - Off label use [Unknown]
  - Liver function test abnormal [Recovering/Resolving]
  - Hepatosplenomegaly [Recovering/Resolving]

NARRATIVE: CASE EVENT DATE: 201406
